FAERS Safety Report 17680015 (Version 7)
Quarter: 2020Q4

REPORT INFORMATION
  Report Type: Report from Study
  Country: JP (occurrence: JP)
  Receive Date: 20200417
  Receipt Date: 20201027
  Transmission Date: 20210113
  Serious: Yes (Hospitalization)
  Sender: FDA-Public Use
  Company Number: JP-CELGENEUS-JPN-20200404070

PATIENT
  Age: 76 Year
  Sex: Female
  Weight: 42.1 kg

DRUGS (32)
  1. MAXIPIME [Concomitant]
     Active Substance: CEFEPIME HYDROCHLORIDE
     Indication: URETHRITIS
     Dosage: 1 GRAM
     Route: 042
     Dates: start: 20200328, end: 20200328
  2. MAXIPIME [Concomitant]
     Active Substance: CEFEPIME HYDROCHLORIDE
     Indication: PROPHYLAXIS
     Dosage: 1 GRAM
     Route: 042
     Dates: start: 20200401, end: 20200401
  3. MAGMITT [Concomitant]
     Active Substance: MAGNESIUM OXIDE
     Indication: CONSTIPATION
     Route: 065
  4. PEMBROLIZUMAB (MK-3475) [Suspect]
     Active Substance: PEMBROLIZUMAB
     Indication: NON-SMALL CELL LUNG CANCER STAGE IV
     Dosage: 200 MILLILITER
     Route: 041
     Dates: start: 20200324, end: 20200324
  5. CARBAZOCHROME SODIUM SULFONATE [Concomitant]
     Active Substance: CARBAZOCHROME SODIUM SULFONATE
     Indication: TUMOUR HAEMORRHAGE
     Route: 065
     Dates: start: 20200409
  6. MAXIPIME [Concomitant]
     Active Substance: CEFEPIME HYDROCHLORIDE
     Indication: PYREXIA
     Dosage: 3 GRAM
     Route: 042
     Dates: start: 20200329, end: 20200331
  7. ABRAXANE [Suspect]
     Active Substance: PACLITAXEL
     Indication: NON-SMALL CELL LUNG CANCER STAGE IV
     Dosage: 100 MILLIGRAM/SQ. METER
     Route: 042
     Dates: start: 20200324, end: 20200324
  8. ZOLPIDEM [Concomitant]
     Active Substance: ZOLPIDEM TARTRATE
     Indication: INSOMNIA
     Dosage: 2.5 MILLIGRAM
     Route: 048
     Dates: start: 20200221
  9. ZOLPIDEM [Concomitant]
     Active Substance: ZOLPIDEM TARTRATE
     Dosage: 2.5 MILLIGRAM
     Route: 048
     Dates: start: 20200324
  10. TRANEXAMIC [Concomitant]
     Active Substance: TRANEXAMIC ACID
     Indication: TUMOUR HAEMORRHAGE
     Route: 065
     Dates: start: 20200409
  11. HIRUDOID [Concomitant]
     Active Substance: GLYCOSAMINOGLYCANS
     Indication: DRY SKIN
     Route: 065
  12. RESTAMIN [Concomitant]
     Active Substance: DIPHENHYDRAMINE
     Indication: DRY SKIN
     Route: 065
  13. RISPERIDONE. [Concomitant]
     Active Substance: RISPERIDONE
     Indication: PROPHYLAXIS
     Route: 065
  14. ABRAXANE [Suspect]
     Active Substance: PACLITAXEL
     Dosage: 100 MILLIGRAM/SQ. METER
     Route: 042
     Dates: start: 20200408, end: 20200408
  15. CARBOPLATIN. [Suspect]
     Active Substance: CARBOPLATIN
     Indication: NON-SMALL CELL LUNG CANCER STAGE IV
     Dosage: AUC OF 6 MG/ML/MIN
     Route: 042
     Dates: start: 20200324, end: 20200324
  16. PANVITAN [Concomitant]
     Active Substance: VITAMINS
     Indication: PROPHYLAXIS
     Dosage: 1 GRAM
     Route: 048
     Dates: start: 20200219
  17. VITAMEDIN INTRAVENOUS [Concomitant]
     Active Substance: CYANOCOBALAMIN\PYRIDOXINE HYDROCHLORIDE\THIAMINE
     Indication: DECREASED APPETITE
     Route: 041
  18. HYALONSAN [Concomitant]
     Active Substance: HYALURONATE SODIUM
     Indication: GLAUCOMA
     Dosage: 1 GTT DAILY
     Route: 047
     Dates: start: 202002
  19. SENNA [Concomitant]
     Active Substance: SENNA LEAF\SENNOSIDES\SENNOSIDES A AND B
     Indication: CONSTIPATION
     Route: 048
     Dates: start: 20200325, end: 20200327
  20. MYSER [Concomitant]
     Indication: DRY SKIN
     Route: 065
  21. DENOTAS [Concomitant]
     Active Substance: CALCIUM CARBONATE\CHOLECALCIFEROL\MAGNESIUM CARBONATE
     Indication: PROPHYLAXIS
     Route: 048
     Dates: start: 20200219
  22. LEVOFLOXACIN. [Concomitant]
     Active Substance: LEVOFLOXACIN
     Indication: URETHRITIS
  23. TAKECAB [Concomitant]
     Active Substance: VONOPRAZAN FUMARATE
     Indication: GASTRITIS PROPHYLAXIS
     Dosage: 10 MILLIGRAM
     Route: 048
     Dates: start: 20200219
  24. BETAMETHASONE. [Concomitant]
     Active Substance: BETAMETHASONE
     Indication: DRY SKIN
     Dosage: 2 MILLIGRAM
     Route: 048
     Dates: start: 20200219
  25. ALPHAGAN P [Concomitant]
     Active Substance: BRIMONIDINE TARTRATE
     Indication: GLAUCOMA
     Dosage: 1 GTT DAILY
     Route: 047
     Dates: start: 202002
  26. EMEND [Concomitant]
     Active Substance: APREPITANT
     Indication: PREMEDICATION
     Route: 048
     Dates: start: 20200325, end: 20200326
  27. LEVOFLOXACIN. [Concomitant]
     Active Substance: LEVOFLOXACIN
     Indication: PROPHYLAXIS
     Dosage: 500 MILLIGRAM
     Route: 048
     Dates: start: 20200401, end: 20200405
  28. TAFLUPROST W/TIMOLOL MALEATE [Concomitant]
     Indication: GLAUCOMA
     Dosage: 1 GTT DAILY
     Route: 047
     Dates: start: 202002
  29. DECADRON [Concomitant]
     Active Substance: DEXAMETHASONE
     Indication: PREMEDICATION
     Dosage: 8 MILLIGRAM
     Route: 048
     Dates: start: 20200325, end: 20200327
  30. DEXART [Concomitant]
     Active Substance: DEXAMETHASONE SODIUM PHOSPHATE
     Indication: PREMEDICATION
     Dosage: 6.6 MILLIGRAM
     Route: 042
     Dates: start: 20200408, end: 20200408
  31. ACETAMINOPHEN. [Concomitant]
     Active Substance: ACETAMINOPHEN
     Indication: TUMOUR HAEMORRHAGE
     Route: 065
     Dates: start: 20200409
  32. XYZAL [Concomitant]
     Active Substance: LEVOCETIRIZINE DIHYDROCHLORIDE
     Indication: DRY SKIN
     Route: 065

REACTIONS (1)
  - Tumour haemorrhage [Not Recovered/Not Resolved]

NARRATIVE: CASE EVENT DATE: 20200409
